FAERS Safety Report 9843905 (Version 1)
Quarter: 2013Q4

REPORT INFORMATION
  Report Type: Spontaneous
  Country: US (occurrence: None)
  Receive Date: 20131223
  Receipt Date: 20131223
  Transmission Date: 20140711
  Serious: No
  Sender: FDA-Public Use
  Company Number: 1000049016

PATIENT
  Age: 31 Year
  Sex: Female

DRUGS (5)
  1. LINZNESS [Suspect]
     Indication: IRRITABLE BOWEL SYNDROME
     Route: 048
     Dates: start: 201304
  2. NEUROTRONIN (GABAPENTIN) (GABAPENTIN) [Concomitant]
  3. AMITRIPTYLINE (AMITRIPTYLINE) (AMITRIPTYLINE) [Concomitant]
  4. PERCOCET (OXYCODONE , ACETAMINOPHEN) (OXYCODONE, ACETAMINOPHEN) [Concomitant]
  5. FENTAYL (FENTANYL) (25 MICROGRAM TRANSDERMAL) (FENTANYL) [Concomitant]

REACTIONS (1)
  - Drug ineffective [None]
